FAERS Safety Report 9844845 (Version 1)
Quarter: 2014Q1

REPORT INFORMATION
  Report Type: Spontaneous
  Country: IT (occurrence: None)
  Receive Date: 20140122
  Receipt Date: 20140122
  Transmission Date: 20141002
  Serious: Yes (Hospitalization)
  Sender: FDA-Public Use
  Company Number: B0961079A

PATIENT
  Age: 60 Year
  Sex: 0

DRUGS (3)
  1. PAROXETINE HYDROCHLORIDE [Suspect]
     Indication: ANXIETY
     Route: 048
     Dates: start: 20131101, end: 20131206
  2. LORAZEPAM [Suspect]
     Indication: ANXIETY
     Route: 048
     Dates: start: 20131101, end: 20131206
  3. CLOMIPRAMINE HCL [Suspect]
     Indication: ANXIETY
     Route: 048

REACTIONS (2)
  - Constipation [None]
  - Abdominal pain [None]
